FAERS Safety Report 9938634 (Version 1)
Quarter: 2014Q1

REPORT INFORMATION
  Report Type: Spontaneous
  Country: FR (occurrence: FR)
  Receive Date: 20140303
  Receipt Date: 20140303
  Transmission Date: 20141002
  Serious: Yes (Hospitalization, Other)
  Sender: FDA-Public Use
  Company Number: FR-JNJFOC-20140300262

PATIENT
  Age: 3 Year
  Sex: Male

DRUGS (2)
  1. TOPALGIC [Suspect]
     Indication: PRODUCT USED FOR UNKNOWN INDICATION
     Route: 048
  2. TIAPRIDAL [Suspect]
     Indication: PRODUCT USED FOR UNKNOWN INDICATION
     Route: 048
     Dates: start: 20131211, end: 20131214

REACTIONS (5)
  - Abnormal behaviour [Recovered/Resolved]
  - Aggression [Recovered/Resolved]
  - Drug dispensing error [Recovered/Resolved]
  - Agitation [Recovered/Resolved]
  - Insomnia [Recovered/Resolved]
